FAERS Safety Report 20160277 (Version 1)
Quarter: 2021Q4

REPORT INFORMATION
  Report Type: Spontaneous
  Country: US (occurrence: US)
  Receive Date: 20211208
  Receipt Date: 20211208
  Transmission Date: 20220303
  Serious: No
  Sender: FDA-Public Use
  Company Number: US-SANOFI-00878915

PATIENT
  Sex: Female

DRUGS (1)
  1. DUPIXENT [Suspect]
     Active Substance: DUPILUMAB
     Indication: Dermatitis atopic
     Dosage: 300 MG, QOW
     Dates: start: 202107

REACTIONS (3)
  - Eosinophil count increased [Unknown]
  - Endodontic procedure [Unknown]
  - Bone graft [Unknown]

NARRATIVE: CASE EVENT DATE: 20210101
